FAERS Safety Report 9389076 (Version 3)
Quarter: 2014Q1

REPORT INFORMATION
  Report Type: Spontaneous
  Country: US (occurrence: US)
  Receive Date: 20130708
  Receipt Date: 20140206
  Transmission Date: 20141002
  Serious: Yes (Hospitalization, Other)
  Sender: FDA-Public Use
  Company Number: US-RB-055670-13

PATIENT
  Sex: Female

DRUGS (3)
  1. SUBOXONE FILM [Suspect]
     Indication: DRUG DEPENDENCE
     Dosage: SUBOXONE FILM
     Route: 060
     Dates: start: 20110510
  2. SUBOXONE FILM [Suspect]
     Indication: PAIN
     Dosage: SUBOXONE FILM
     Route: 060
     Dates: start: 20110510
  3. NICOTINE [Concomitant]
     Indication: NICOTINE DEPENDENCE
     Dosage: TWO PACKS OF CIGARETTES PER DAY

REACTIONS (2)
  - Lung neoplasm malignant [Not Recovered/Not Resolved]
  - Radiation associated pain [Not Recovered/Not Resolved]
